FAERS Safety Report 7868153-0 (Version None)
Quarter: 2011Q4

REPORT INFORMATION
  Report Type: 
  Country: None (occurrence: None)
  Receive Date: 20111028
  Receipt Date: 20111019
  Transmission Date: 20120403
  Serious: Yes (Hospitalization)
  Sender: FDA-Public Use
  Company Number: US-ASTRAZENECA-2011SE63248

PATIENT
  Age: 79 Year
  Sex: Female
  Weight: 80.3 kg

DRUGS (1)
  1. SEROQUEL [Suspect]
     Route: 048

REACTIONS (2)
  - INFECTED BITES [None]
  - DEMENTIA ALZHEIMER'S TYPE [None]
